FAERS Safety Report 9454932 (Version 1)
Quarter: 2013Q3

REPORT INFORMATION
  Report Type: Report from Study
  Country: AU (occurrence: AU)
  Receive Date: 20130813
  Receipt Date: 20130813
  Transmission Date: 20140515
  Serious: Yes (Other)
  Sender: FDA-Public Use
  Company Number: AU-ROCHE-1260573

PATIENT
  Sex: Male

DRUGS (2)
  1. MABTHERA [Suspect]
     Indication: HIV INFECTION
     Dosage: 375MG/M2; 4 DOSES AS MONOTHERAPY.
     Route: 042
     Dates: start: 201302
  2. MABTHERA [Suspect]
     Indication: CASTLEMAN^S DISEASE

REACTIONS (2)
  - Disease progression [Unknown]
  - Disease recurrence [Unknown]
